FAERS Safety Report 6457521-X (Version None)
Quarter: 2009Q4

REPORT INFORMATION
  Report Type: 
  Country: None (occurrence: None)
  Receive Date: 20091125
  Receipt Date: 20091113
  Transmission Date: 20100525
  Serious: Yes (Hospitalization, Other)
  Sender: FDA-Public Use
  Company Number: PHHY2009JP44877

PATIENT
  Age: 73 Year
  Sex: Male

DRUGS (4)
  1. GLEEVEC [Suspect]
     Indication: CHRONIC MYELOID LEUKAEMIA
     Dosage: 400 MG DAILY
     Dates: start: 20011201
  2. GLEEVEC [Suspect]
     Dosage: 200 MG DAILY
  3. DASATINIB [Suspect]
     Dosage: 140 MG/DAY
     Dates: start: 20060824
  4. DASATINIB [Suspect]
     Dosage: 100 MG/DAY

REACTIONS (10)
  - GENE MUTATION IDENTIFICATION TEST POSITIVE [None]
  - HAEMATOCHEZIA [None]
  - LARGE INTESTINAL HAEMORRHAGE [None]
  - LARGE INTESTINAL ULCER [None]
  - LOWER GASTROINTESTINAL HAEMORRHAGE [None]
  - MALIGNANT NEOPLASM PROGRESSION [None]
  - MELAENA [None]
  - MYALGIA [None]
  - PLEURAL EFFUSION [None]
  - PYREXIA [None]
